FAERS Safety Report 19639166 (Version 3)
Quarter: 2021Q3

REPORT INFORMATION
  Report Type: Spontaneous
  Country: AR (occurrence: AR)
  Receive Date: 20210729
  Receipt Date: 20210929
  Transmission Date: 20211014
  Serious: Yes (Other)
  Sender: FDA-Public Use
  Company Number: AR-PFIZER INC-2021813783

PATIENT
  Age: 32 Year
  Sex: Female

DRUGS (1)
  1. SOMAVERT [Suspect]
     Active Substance: PEGVISOMANT
     Indication: ACROMEGALY
     Dosage: 10 MG, FOUR TIMES PER WEEK
     Dates: start: 20051220

REACTIONS (4)
  - Off label use [Unknown]
  - Condition aggravated [Unknown]
  - Incorrect dose administered [Unknown]
  - Device physical property issue [Unknown]

NARRATIVE: CASE EVENT DATE: 20051220
